FAERS Safety Report 9413043 (Version 4)
Quarter: 2013Q4

REPORT INFORMATION
  Report Type: Spontaneous
  Country: FR (occurrence: FR)
  Receive Date: 20130722
  Receipt Date: 20131108
  Transmission Date: 20140711
  Serious: Yes (Other)
  Sender: FDA-Public Use
  Company Number: FR-GLAXOSMITHKLINE-B0900879A

PATIENT
  Sex: Male

DRUGS (13)
  1. REQUIP [Suspect]
     Indication: PARKINSON^S DISEASE
     Route: 048
     Dates: start: 200004, end: 200804
  2. MODOPAR [Concomitant]
     Indication: PARKINSON^S DISEASE
     Route: 065
     Dates: start: 200108
  3. MOTILIUM [Concomitant]
     Route: 065
     Dates: start: 200004
  4. PHYSIOTHERAPY [Concomitant]
  5. GAVISCON [Concomitant]
     Indication: GASTROOESOPHAGEAL REFLUX DISEASE
     Dosage: 40MG IN THE MORNING
     Route: 065
     Dates: start: 2002
  6. LEXOMIL [Concomitant]
     Route: 065
  7. SYNVISC [Concomitant]
     Route: 065
  8. INEXIUM [Concomitant]
     Indication: ABDOMINAL PAIN UPPER
     Dosage: 40MG IN THE MORNING
     Route: 065
  9. BEFIZAL [Concomitant]
     Indication: HYPERCHOLESTEROLAEMIA
     Route: 065
  10. STALEVO [Concomitant]
     Indication: PARKINSON^S DISEASE
     Route: 065
     Dates: start: 200509
  11. DI ANTALVIC [Concomitant]
     Route: 065
  12. LAMALINE [Concomitant]
     Route: 065
  13. RIVOTRIL [Concomitant]
     Route: 065

REACTIONS (21)
  - Obsessive-compulsive disorder [Not Recovered/Not Resolved]
  - Pathological gambling [Not Recovered/Not Resolved]
  - Impulsive behaviour [Unknown]
  - Depression [Unknown]
  - Abnormal behaviour [Unknown]
  - Nausea [Unknown]
  - Sluggishness [Unknown]
  - Insomnia [Unknown]
  - Somnolence [Unknown]
  - Sleep disorder [Unknown]
  - Balance disorder [Unknown]
  - Nightmare [Recovering/Resolving]
  - Parasomnia [Recovering/Resolving]
  - Sexual dysfunction [Unknown]
  - Hallucination [Unknown]
  - Middle insomnia [Unknown]
  - Eating disorder [Unknown]
  - Agitation [Recovering/Resolving]
  - Aggression [Recovering/Resolving]
  - Night sweats [Unknown]
  - Dopamine dysregulation syndrome [Unknown]
